FAERS Safety Report 8189452-1 (Version None)
Quarter: 2012Q1

REPORT INFORMATION
  Report Type: 
  Country: None (occurrence: None)
  Receive Date: 20120307
  Receipt Date: 20120302
  Transmission Date: 20120608
  Serious: No
  Sender: FDA-Public Use
  Company Number: US-PFIZER INC-2012056862

PATIENT
  Sex: Female

DRUGS (3)
  1. NEURONTIN [Suspect]
     Dosage: UNK
  2. TRAZODONE HCL [Suspect]
     Dosage: UNK
  3. NIASPAN [Suspect]
     Dosage: UNK

REACTIONS (2)
  - SWELLING [None]
  - PRURITUS [None]
